FAERS Safety Report 9547961 (Version 2)
Quarter: 2013Q3

REPORT INFORMATION
  Report Type: Spontaneous
  Country: US (occurrence: US)
  Receive Date: 20130924
  Receipt Date: 20130924
  Transmission Date: 20140515
  Serious: Yes (Death, Other)
  Sender: FDA-Public Use
  Company Number: US-NAPPMUNDI-USA-2012-0083754

PATIENT
  Age: 32 Year
  Sex: Female
  Weight: 111.57 kg

DRUGS (19)
  1. MORPHINE SULFATE (SIMILAR TO NDA 19-516) [Suspect]
     Indication: PRODUCT USED FOR UNKNOWN INDICATION
  2. OXYCODONE HYDROCHLORIDE (SIMILAR TO NDA 22-272) [Concomitant]
     Indication: PRODUCT USED FOR UNKNOWN INDICATION
  3. TRAMADOL (SIMILAR TO NDA 21-745) [Concomitant]
     Indication: PRODUCT USED FOR UNKNOWN INDICATION
  4. FENTANYL [Concomitant]
     Indication: PRODUCT USED FOR UNKNOWN INDICATION
  5. COCAINE [Concomitant]
     Indication: PRODUCT USED FOR UNKNOWN INDICATION
  6. METHADONE [Concomitant]
     Indication: PRODUCT USED FOR UNKNOWN INDICATION
  7. PHENCYCLIDINE [Concomitant]
     Indication: PRODUCT USED FOR UNKNOWN INDICATION
  8. PROPOXYPHENE [Concomitant]
     Indication: PRODUCT USED FOR UNKNOWN INDICATION
  9. BARBITURATES [Concomitant]
     Indication: PRODUCT USED FOR UNKNOWN INDICATION
  10. CANNABIS [Concomitant]
     Indication: PRODUCT USED FOR UNKNOWN INDICATION
  11. AMPHETAMINE [Concomitant]
     Indication: PRODUCT USED FOR UNKNOWN INDICATION
  12. BENZODIAZEPINE DERIVATIVES [Concomitant]
     Indication: PRODUCT USED FOR UNKNOWN INDICATION
  13. ETHANOL [Concomitant]
     Indication: PRODUCT USED FOR UNKNOWN INDICATION
  14. HYDROCODONE [Concomitant]
     Indication: PRODUCT USED FOR UNKNOWN INDICATION
  15. FLUOXETINE [Concomitant]
     Indication: PRODUCT USED FOR UNKNOWN INDICATION
  16. SERTRALIN                          /01011401/ [Concomitant]
     Indication: PRODUCT USED FOR UNKNOWN INDICATION
  17. AMITRIPTYLIN [Concomitant]
     Indication: PRODUCT USED FOR UNKNOWN INDICATION
  18. ACETAMINOPHEN [Concomitant]
     Indication: PRODUCT USED FOR UNKNOWN INDICATION
  19. OPIOIDS [Concomitant]
     Indication: PRODUCT USED FOR UNKNOWN INDICATION

REACTIONS (2)
  - Accidental overdose [Fatal]
  - Overdose [Unknown]
